FAERS Safety Report 5160593-6 (Version None)
Quarter: 2006Q4

REPORT INFORMATION
  Report Type: 
  Country: None (occurrence: None)
  Receive Date: 20061129
  Receipt Date: 20061124
  Transmission Date: 20070319
  Serious: Yes (Hospitalization)
  Sender: FDA-Public Use
  Company Number: FR-MERCK-0611FRA00068

PATIENT
  Age: 80 Year
  Sex: Female
  Weight: 64 kg

DRUGS (12)
  1. FOSAMAX PLUS D [Suspect]
     Indication: OSTEOPOROSIS
     Route: 048
     Dates: start: 20060215, end: 20061013
  2. ENALAPRIL MALEATE [Suspect]
     Indication: HYPERTENSION
     Route: 048
     Dates: end: 20061013
  3. RABEPRAZOLE SODIUM [Suspect]
     Route: 048
     Dates: end: 20061013
  4. FENOFIBRATE [Concomitant]
     Indication: DYSLIPIDAEMIA
     Route: 048
     Dates: end: 20061013
  5. FLUINDIONE [Concomitant]
     Indication: PROPHYLAXIS
     Route: 048
     Dates: end: 20061013
  6. VERAPAMIL HYDROCHLORIDE [Concomitant]
     Indication: CARDIOMYOPATHY
     Route: 048
  7. LEVOTHYROXINE SODIUM [Concomitant]
     Indication: HYPOTHYROIDISM
     Route: 048
  8. NITROGLYCERIN [Concomitant]
     Route: 061
  9. CETIRIZINE HCL [Concomitant]
     Route: 048
  10. ZOLPIDEM TARTRATE [Concomitant]
     Route: 048
  11. BUDESONIDE [Concomitant]
  12. FERROUS SULFATE TAB [Concomitant]
     Indication: ANAEMIA
     Route: 048

REACTIONS (1)
  - TUBULOINTERSTITIAL NEPHRITIS [None]
